FAERS Safety Report 6666312-6 (Version None)
Quarter: 2010Q2

REPORT INFORMATION
  Report Type: 
  Country: None (occurrence: None)
  Receive Date: 20100402
  Receipt Date: 20100325
  Transmission Date: 20101027
  Serious: Yes (Hospitalization, Other)
  Sender: FDA-Public Use
  Company Number: PE-ELI_LILLY_AND_COMPANY-PE201003002355

PATIENT
  Age: 19 Year
  Sex: Male

DRUGS (3)
  1. ZYPREXA [Suspect]
     Indication: SCHIZOPHRENIA
     Dosage: 10 MG, UNKNOWN
     Route: 065
     Dates: start: 20091001, end: 20100201
  2. ZYPREXA ZYDIS [Suspect]
     Indication: SCHIZOPHRENIA
     Dosage: UNK, UNKNOWN
     Route: 065
     Dates: start: 20100201, end: 20100101
  3. CALCIUM CARBONATE [Concomitant]
     Indication: TUBULOINTERSTITIAL NEPHRITIS
     Dosage: UNK, UNKNOWN
     Route: 065

REACTIONS (6)
  - FEELING ABNORMAL [None]
  - NEUROLEPTIC MALIGNANT SYNDROME [None]
  - PALPITATIONS [None]
  - PSYCHOTIC DISORDER [None]
  - RENAL FAILURE [None]
  - WRONG TECHNIQUE IN DRUG USAGE PROCESS [None]
